FAERS Safety Report 5460170-3 (Version None)
Quarter: 2007Q3

REPORT INFORMATION
  Report Type: 
  Country: None (occurrence: None)
  Receive Date: 20070823
  Receipt Date: 20061218
  Transmission Date: 20080115
  Serious: Yes (Death)
  Sender: FDA-Public Use
  Company Number: 475821

PATIENT
  Age: 63 Year
  Sex: Male

DRUGS (1)
  1. KYTRIL [Suspect]
     Indication: DRUG USE FOR UNKNOWN INDICATION
     Dates: start: 20060920

REACTIONS (1)
  - DEATH [None]
